FAERS Safety Report 17363031 (Version 3)
Quarter: 2020Q1

REPORT INFORMATION
  Report Type: Report from Study
  Country: BR (occurrence: BR)
  Receive Date: 20200203
  Receipt Date: 20200227
  Transmission Date: 20200409
  Serious: Yes (Hospitalization)
  Sender: FDA-Public Use
  Company Number: BR-JNJFOC-20200153222

PATIENT
  Age: 76 Year
  Sex: Female

DRUGS (9)
  1. CONCOR [Concomitant]
     Active Substance: BISOPROLOL FUMARATE
  2. ESCITALOPRAM [Concomitant]
     Active Substance: ESCITALOPRAM OXALATE
  3. GLIFAGE [Concomitant]
     Active Substance: METFORMIN HYDROCHLORIDE
  4. VITAMIN D                          /00107901/ [Concomitant]
     Active Substance: ERGOCALCIFEROL
  5. DIOVAN [Concomitant]
     Active Substance: VALSARTAN
  6. SIMPONI [Suspect]
     Active Substance: GOLIMUMAB
     Indication: RHEUMATOID ARTHRITIS
     Route: 058
     Dates: start: 20190815
  7. METFORMIN [Concomitant]
     Active Substance: METFORMIN HYDROCHLORIDE
  8. DONAREN [Concomitant]
     Active Substance: TRAZODONE HYDROCHLORIDE
  9. CHLORTALIDONE [Concomitant]
     Active Substance: CHLORTHALIDONE

REACTIONS (2)
  - Hypertensive crisis [Recovered/Resolved]
  - Pneumonia [Not Recovered/Not Resolved]

NARRATIVE: CASE EVENT DATE: 20200125
